FAERS Safety Report 15140947 (Version 1)
Quarter: 2018Q3

REPORT INFORMATION
  Report Type: Spontaneous
  Country: US (occurrence: US)
  Receive Date: 20180713
  Receipt Date: 20180713
  Transmission Date: 20181010
  Serious: No
  Sender: FDA-Public Use
  Company Number: US-BAYER-2018-130650

PATIENT
  Sex: Female

DRUGS (1)
  1. ANGELIQ [Suspect]
     Active Substance: DROSPIRENONE\ESTRADIOL
     Indication: CONTRACEPTION
     Route: 048

REACTIONS (3)
  - Off label use [None]
  - Product use in unapproved indication [None]
  - Inappropriate schedule of drug administration [None]
